FAERS Safety Report 6552878-3 (Version None)
Quarter: 2010Q1

REPORT INFORMATION
  Report Type: 
  Country: None (occurrence: None)
  Receive Date: 20100122
  Receipt Date: 20100113
  Transmission Date: 20100710
  Serious: Yes (Other)
  Sender: FDA-Public Use
  Company Number: 310001N10JPN

PATIENT
  Sex: Male

DRUGS (4)
  1. GONAL-F [Suspect]
     Indication: SECONDARY HYPOGONADISM
     Dosage: 75 IU, 1 IN 1 WEEKS, OTHER; 75 IU, 1 IN 1 WEEKS, OTHER
     Route: 050
     Dates: start: 20070220, end: 20070501
  2. GONAL-F [Suspect]
     Indication: SECONDARY HYPOGONADISM
     Dosage: 75 IU, 1 IN 1 WEEKS, OTHER; 75 IU, 1 IN 1 WEEKS, OTHER
     Route: 050
     Dates: start: 20070522, end: 20071211
  3. CHORIONIC GONADORTOPIN INJ [Suspect]
     Indication: SECONDARY HYPOGONADISM
     Dosage: 3000 IU, 1 IN 1 WEEKS, ORAL; 2000 IU, 1 IN 1 WEEKS, OTHER
     Route: 048
     Dates: start: 20070220, end: 20070501
  4. CHORIONIC GONADORTOPIN INJ [Suspect]
     Indication: SECONDARY HYPOGONADISM
     Dosage: 3000 IU, 1 IN 1 WEEKS, ORAL; 2000 IU, 1 IN 1 WEEKS, OTHER
     Route: 048
     Dates: start: 20070522, end: 20071211

REACTIONS (3)
  - MATERNAL DRUGS AFFECTING FOETUS [None]
  - PREMATURE BABY [None]
  - SMALL FOR DATES BABY [None]
